FAERS Safety Report 5594215-7 (Version None)
Quarter: 2008Q1

REPORT INFORMATION
  Report Type: 
  Country: None (occurrence: None)
  Receive Date: 20080117
  Receipt Date: 20071219
  Transmission Date: 20080703
  Serious: Yes (Other)
  Sender: FDA-Public Use
  Company Number: NO-DENTSPLY-E2B_00000005

PATIENT
  Sex: Female

DRUGS (2)
  1. XYLOCAINE [Suspect]
     Indication: WISDOM TEETH REMOVAL
     Route: 051
     Dates: start: 20071214, end: 20071214
  2. SEPTOCAINE [Suspect]
     Indication: WISDOM TEETH REMOVAL
     Route: 051
     Dates: start: 20071214, end: 20071214

REACTIONS (1)
  - SYNCOPE VASOVAGAL [None]
